FAERS Safety Report 13234409 (Version 1)
Quarter: 2017Q1

REPORT INFORMATION
  Report Type: Spontaneous
  Country: GB (occurrence: GB)
  Receive Date: 20170215
  Receipt Date: 20170215
  Transmission Date: 20170428
  Serious: Yes (Other)
  Sender: FDA-Public Use
  Company Number: GB-TEVA-740161ACC

PATIENT
  Age: 64 Year
  Sex: Female
  Weight: 73 kg

DRUGS (1)
  1. OMEPRAZOLE. [Suspect]
     Active Substance: OMEPRAZOLE
     Indication: HYPERCHLORHYDRIA
     Dosage: 40 MILLIGRAM DAILY;

REACTIONS (5)
  - Fatigue [Unknown]
  - Hyperhidrosis [Unknown]
  - Diarrhoea [Unknown]
  - Insomnia [Unknown]
  - Headache [Unknown]
